FAERS Safety Report 10129305 (Version 2)
Quarter: 2015Q1

REPORT INFORMATION
  Report Type: Other
  Country: US (occurrence: US)
  Receive Date: 20140428
  Receipt Date: 20150203
  Transmission Date: 20150720
  Serious: Yes (Death, Hospitalization, Other)
  Sender: FDA-Public Use
  Company Number: US-GSKPPD-2014GSK032787

PATIENT
  Age: 75 Year
  Sex: Male
  Weight: 121.22 kg

DRUGS (9)
  1. CLONIDINE. [Concomitant]
     Active Substance: CLONIDINE
  2. VASOTEC [Concomitant]
     Active Substance: ENALAPRIL MALEATE
  3. DILTIAZEM [Concomitant]
     Active Substance: DILTIAZEM
  4. ENALAPRIL [Concomitant]
     Active Substance: ENALAPRIL
  5. PRAVASTATIN [Concomitant]
     Active Substance: PRAVASTATIN\PRAVASTATIN SODIUM
  6. LASIX [Concomitant]
     Active Substance: FUROSEMIDE
     Route: 048
  7. AVANDIA [Suspect]
     Active Substance: ROSIGLITAZONE MALEATE
     Indication: DIABETES MELLITUS
     Dosage: DATES OF AVANDIA USE COULD NOT BE CONFIRMED IN RECORDS REVIEWED.
     Route: 048
  8. CARDIZEM CD [Concomitant]
     Active Substance: DILTIAZEM HYDROCHLORIDE
  9. DIGOXIN. [Concomitant]
     Active Substance: DIGOXIN

REACTIONS (6)
  - Myocardial infarction [Not Recovered/Not Resolved]
  - Acute pulmonary oedema [Not Recovered/Not Resolved]
  - Cardiovascular disorder [Not Recovered/Not Resolved]
  - Atrial fibrillation [Not Recovered/Not Resolved]
  - Hypoxic-ischaemic encephalopathy [Fatal]
  - Cardiac failure congestive [Not Recovered/Not Resolved]

NARRATIVE: CASE EVENT DATE: 20101006
